FAERS Safety Report 24894505 (Version 1)
Quarter: 2025Q1

REPORT INFORMATION
  Report Type: Spontaneous
  Country: IT (occurrence: IT)
  Receive Date: 20250128
  Receipt Date: 20250128
  Transmission Date: 20250409
  Serious: Yes (Other)
  Sender: DAIICHI
  Company Number: IT-DSJP-DS-2025-119966-IT

PATIENT
  Sex: Female

DRUGS (1)
  1. TRASTUZUMAB DERUXTECAN [Suspect]
     Active Substance: TRASTUZUMAB DERUXTECAN
     Indication: Gastric cancer
     Route: 065

REACTIONS (2)
  - Myelosuppression [Unknown]
  - Gastrointestinal toxicity [Unknown]
